FAERS Safety Report 5079484-4 (Version None)
Quarter: 2006Q3

REPORT INFORMATION
  Report Type: 
  Country: None (occurrence: None)
  Receive Date: 20060814
  Receipt Date: 20060627
  Transmission Date: 20061208
  Serious: Yes (Hospitalization)
  Sender: FDA-Public Use
  Company Number: US-JNJFOC-20060304007

PATIENT
  Sex: Male
  Weight: 79.38 kg

DRUGS (3)
  1. RISPERIDONE CONSTA [Suspect]
     Indication: SCHIZOPHRENIA
     Route: 030
  2. RISPERDAL [Concomitant]
     Indication: SCHIZOPHRENIA
     Route: 048
  3. TRAZODONE HCL [Concomitant]
     Indication: SLEEP DISORDER
     Route: 048

REACTIONS (2)
  - ALCOHOLISM [None]
  - SCHIZOPHRENIA [None]
